FAERS Safety Report 6577519-0 (Version None)
Quarter: 2010Q1

REPORT INFORMATION
  Report Type: 
  Country: None (occurrence: None)
  Receive Date: 20100211
  Receipt Date: 20100203
  Transmission Date: 20100710
  Serious: Yes (Other)
  Sender: FDA-Public Use
  Company Number: FR-ASTRAZENECA-2010SE05049

PATIENT

DRUGS (3)
  1. OMEPRAZOLE [Suspect]
     Route: 048
  2. CRESTOR [Suspect]
     Route: 048
  3. PARACETAMOL [Concomitant]

REACTIONS (1)
  - CYTOLYTIC HEPATITIS [None]
